FAERS Safety Report 9215660 (Version 1)
Quarter: 2013Q2

REPORT INFORMATION
  Report Type: Spontaneous
  Country: ZA (occurrence: None)
  Receive Date: 20130404
  Receipt Date: 20130404
  Transmission Date: 20140414
  Serious: Yes (Death, Other)
  Sender: FDA-Public Use
  Company Number: AUR-APL-2013-02628

PATIENT
  Age: 29 Year
  Sex: Female

DRUGS (3)
  1. NEVIRAPINE [Suspect]
     Indication: HIV INFECTION
     Dosage: 200 MG, 1 D, UNKNOWN
  2. LAMIVUDINE [Suspect]
     Indication: HIV INFECTION
  3. TENOFOVIR [Suspect]
     Indication: HIV INFECTION

REACTIONS (17)
  - Maternal exposure during pregnancy [None]
  - Rash generalised [None]
  - Acute hepatic failure [None]
  - Hypotension [None]
  - Dyspnoea [None]
  - Oliguria [None]
  - Altered state of consciousness [None]
  - Haemoglobin decreased [None]
  - White blood cell count increased [None]
  - Blood urea increased [None]
  - Blood creatinine increased [None]
  - International normalised ratio increased [None]
  - Foetal death [None]
  - Hepatic encephalopathy [None]
  - No therapeutic response [None]
  - Toxicity to various agents [None]
  - Hypersensitivity [None]
